FAERS Safety Report 12207249 (Version 1)
Quarter: 2016Q1

REPORT INFORMATION
  Report Type: Spontaneous
  Country: US (occurrence: None)
  Receive Date: 20160323
  Receipt Date: 20160323
  Transmission Date: 20160526
  Serious: Yes (Other)
  Sender: FDA-Public Use
  Company Number: None

PATIENT
  Age: 48 Year
  Sex: Female
  Weight: 100.7 kg

DRUGS (2)
  1. SOVALDI [Suspect]
     Active Substance: SOFOSBUVIR
     Indication: CHRONIC HEPATITIS C
     Route: 048
     Dates: start: 20160302
  2. MODERIBA [Suspect]
     Active Substance: RIBAVIRIN
     Indication: CHRONIC HEPATITIS C
     Dosage: 200MG 3 TWICE DAIL BY MOUTH
     Route: 048
     Dates: start: 20160302

REACTIONS (4)
  - Headache [None]
  - Gingival blister [None]
  - Rash pruritic [None]
  - Drug effect incomplete [None]

NARRATIVE: CASE EVENT DATE: 20160321
